FAERS Safety Report 18769714 (Version 2)
Quarter: 2021Q4

REPORT INFORMATION
  Report Type: Report from Study
  Country: IT (occurrence: IT)
  Receive Date: 20210121
  Receipt Date: 20211020
  Transmission Date: 20220304
  Serious: Yes (Other)
  Sender: FDA-Public Use
  Company Number: IT-TAKEDA-2021TUS002647

PATIENT
  Age: 72 Year
  Sex: Female
  Weight: 65 kg

DRUGS (2)
  1. BRENTUXIMAB VEDOTIN [Suspect]
     Active Substance: BRENTUXIMAB VEDOTIN
     Indication: Hodgkin^s disease
     Dosage: 1.20 MILLIGRAM/KILOGRAM
     Route: 042
     Dates: start: 20171024
  2. BENDAMUSTINE HYDROCHLORIDE [Suspect]
     Active Substance: BENDAMUSTINE HYDROCHLORIDE
     Indication: Hodgkin^s disease
     Dosage: 90 MILLIGRAM/SQ. METER, Q3WEEKS
     Route: 042
     Dates: start: 20171024

REACTIONS (1)
  - Lymphoma [Recovered/Resolved with Sequelae]

NARRATIVE: CASE EVENT DATE: 20201104
